FAERS Safety Report 6201052-9 (Version None)
Quarter: 2009Q2

REPORT INFORMATION
  Report Type: 
  Country: None (occurrence: None)
  Receive Date: 20090526
  Receipt Date: 20090519
  Transmission Date: 20091009
  Serious: Yes (Life-Threatening, Other)
  Sender: FDA-Public Use
  Company Number: IT-BRISTOL-MYERS SQUIBB COMPANY-14635361

PATIENT
  Age: 42 Year
  Sex: Female

DRUGS (1)
  1. METFORMIN HCL [Suspect]

REACTIONS (6)
  - COMA [None]
  - HEPATIC FAILURE [None]
  - LACTIC ACIDOSIS [None]
  - RENAL FAILURE [None]
  - RHABDOMYOLYSIS [None]
  - SHOCK [None]
